FAERS Safety Report 17407739 (Version 1)
Quarter: 2020Q1

REPORT INFORMATION
  Report Type: Spontaneous
  Country: US (occurrence: US)
  Receive Date: 20200212
  Receipt Date: 20200212
  Transmission Date: 20200409
  Serious: No
  Sender: FDA-Public Use
  Company Number: US-TEVA-2020-US-1182354

PATIENT
  Sex: Female

DRUGS (4)
  1. IRBESARTAN. [Concomitant]
     Active Substance: IRBESARTAN
  2. CLONIDINE HYDROCHLORIDE. [Suspect]
     Active Substance: CLONIDINE HYDROCHLORIDE
     Indication: HYPERTENSION
     Dosage: TRANSDERMAL SYSTEM
     Route: 062
     Dates: start: 20200129
  3. MARIJUANA [Interacting]
     Active Substance: CANNABIS SATIVA SUBSP. INDICA TOP
     Dosage: VAPORIZER THAT WAS 41% THC
     Route: 065
  4. MARIJUANA [Interacting]
     Active Substance: CANNABIS SATIVA SUBSP. INDICA TOP
     Indication: PAIN

REACTIONS (5)
  - Musculoskeletal pain [Unknown]
  - Accidental exposure to product [Unknown]
  - Dizziness [Unknown]
  - Insomnia [Unknown]
  - Drug interaction [Unknown]
